FAERS Safety Report 5140588-9 (Version None)
Quarter: 2006Q4

REPORT INFORMATION
  Report Type: 
  Country: None (occurrence: None)
  Receive Date: 20061024
  Receipt Date: 20061005
  Transmission Date: 20070319
  Serious: Yes (Other)
  Sender: FDA-Public Use
  Company Number: DE200610002289

PATIENT
  Age: 17 Year
  Sex: Male
  Weight: 54.8 kg

DRUGS (1)
  1. STRATTERA [Suspect]
     Indication: ATTENTION DEFICIT/HYPERACTIVITY DISORDER
     Dosage: 40 MG DAILY (1/D) ORAL
     Route: 047

REACTIONS (4)
  - PARAESTHESIA ORAL [None]
  - SPEECH DISORDER [None]
  - SYNCOPE [None]
  - TONGUE DISORDER [None]
